FAERS Safety Report 4470811-5 (Version None)
Quarter: 2004Q4

REPORT INFORMATION
  Report Type: 
  Country: None (occurrence: None)
  Receive Date: 20041011
  Receipt Date: 20041006
  Transmission Date: 20050328
  Serious: Yes (Life-Threatening)
  Sender: FDA-Public Use
  Company Number: IT-BRISTOL-MYERS SQUIBB COMPANY-12723995

PATIENT
  Age: 62 Year
  Sex: Male

DRUGS (7)
  1. CISPLATIN [Suspect]
     Indication: METASTATIC MALIGNANT MELANOMA
     Route: 042
     Dates: start: 20040917, end: 20040917
  2. MORPHINE SULFATE [Suspect]
     Indication: PAIN
     Route: 048
     Dates: start: 20040915, end: 20040920
  3. TEMODAL [Suspect]
     Indication: METASTATIC MALIGNANT MELANOMA
     Route: 048
     Dates: start: 20040917, end: 20040920
  4. METAMIZOLE SODIUM [Suspect]
     Indication: PYREXIA
     Route: 048
     Dates: start: 20040920, end: 20040920
  5. PARACETAMOL [Suspect]
     Indication: PAIN
     Route: 048
     Dates: start: 20040831, end: 20040919
  6. OMEPRAZOLE [Concomitant]
     Indication: GASTRITIS
     Route: 048
     Dates: start: 20040831, end: 20040920
  7. ANTIHYPERTENSIVE [Concomitant]
     Indication: HYPERTENSION
     Route: 048
     Dates: start: 20030101, end: 20040920

REACTIONS (1)
  - SEPTIC SHOCK [None]
